FAERS Safety Report 14065567 (Version 1)
Quarter: 2017Q4

REPORT INFORMATION
  Report Type: Spontaneous
  Country: US (occurrence: US)
  Receive Date: 20171009
  Receipt Date: 20171009
  Transmission Date: 20180321
  Serious: Yes (Hospitalization)
  Sender: FDA-Public Use
  Company Number: US-IMPAX LABORATORIES, INC-2017-IPXL-02822

PATIENT
  Age: 45 Year
  Sex: Male

DRUGS (6)
  1. LISINOPRIL. [Suspect]
     Active Substance: LISINOPRIL
     Indication: PANCREATITIS
     Dosage: UNK
     Route: 065
  2. LOVAZA [Suspect]
     Active Substance: OMEGA-3-ACID ETHYL ESTERS
     Indication: PANCREATITIS
     Dosage: UNK
     Route: 065
  3. LEVEMIR [Suspect]
     Active Substance: INSULIN DETEMIR
     Indication: PANCREATITIS
     Dosage: UNK
     Route: 065
  4. FENOFIBRATE. [Suspect]
     Active Substance: FENOFIBRATE
     Indication: PANCREATITIS
     Dosage: UNK
     Route: 065
  5. NOVOLOG [Suspect]
     Active Substance: INSULIN ASPART
     Indication: PANCREATITIS
     Dosage: UNK
     Route: 065
  6. FENOFIBRATE. [Suspect]
     Active Substance: FENOFIBRATE
     Indication: PRODUCT USE IN UNAPPROVED INDICATION

REACTIONS (5)
  - Pancreatic pseudocyst [Recovering/Resolving]
  - Product use in unapproved indication [Unknown]
  - Pancreatitis chronic [Recovering/Resolving]
  - Liver function test increased [Recovering/Resolving]
  - Pancreatitis relapsing [Recovering/Resolving]
